FAERS Safety Report 4658221-9 (Version None)
Quarter: 2005Q2

REPORT INFORMATION
  Report Type: 
  Country: None (occurrence: None)
  Receive Date: 20050505
  Receipt Date: 20050216
  Transmission Date: 20051028
  Serious: No
  Sender: FDA-Public Use
  Company Number: 2005USFACT00327

PATIENT
  Age: 70 Year
  Sex: Female

DRUGS (1)
  1. FACTIVE [Suspect]
     Indication: RESPIRATORY TRACT INFECTION BACTERIAL
     Dates: start: 20050101, end: 20050101

REACTIONS (3)
  - ABDOMINAL PAIN [None]
  - PAIN IN EXTREMITY [None]
  - RASH GENERALISED [None]
